FAERS Safety Report 21044900 (Version 1)
Quarter: 2022Q3

REPORT INFORMATION
  Report Type: Spontaneous
  Country: US (occurrence: US)
  Receive Date: 20220705
  Receipt Date: 20220705
  Transmission Date: 20221026
  Serious: No
  Sender: FDA-Public Use
  Company Number: US-UPSHER-SMITH LABORATORIES, LLC-2021USL00720

PATIENT
  Age: 70 Year
  Sex: Male
  Weight: 83.9 kg

DRUGS (5)
  1. TESTOSTERONE [Suspect]
     Active Substance: TESTOSTERONE
     Indication: Blood testosterone decreased
     Dosage: 2 PACKS, 1X/DAY IN THE MORNING (TO EACH SHOULDER)
     Route: 061
  2. TESTOSTERONE [Suspect]
     Active Substance: TESTOSTERONE
     Dosage: 2 PACKS, 1X/DAY IN THE MORNING (TO EACH SHOULDER)
     Route: 061
     Dates: end: 202111
  3. LOSARTAN [Concomitant]
     Active Substance: LOSARTAN
  4. ATORVASTATIN [Concomitant]
     Active Substance: ATORVASTATIN
  5. TRAZODONE [Concomitant]
     Active Substance: TRAZODONE HYDROCHLORIDE

REACTIONS (6)
  - Pruritus [Not Recovered/Not Resolved]
  - Histamine level increased [Not Recovered/Not Resolved]
  - Blood iron increased [Unknown]
  - Red blood cell count increased [Unknown]
  - Haemoglobin increased [Unknown]
  - Haematocrit increased [Unknown]

NARRATIVE: CASE EVENT DATE: 20210301
